FAERS Safety Report 8041169-X (Version None)
Quarter: 2012Q1

REPORT INFORMATION
  Report Type: 
  Country: None (occurrence: None)
  Receive Date: 20120112
  Receipt Date: 20120106
  Transmission Date: 20120608
  Serious: Yes (Hospitalization)
  Sender: FDA-Public Use
  Company Number: ZA-BRISTOL-MYERS SQUIBB COMPANY-15589179

PATIENT
  Age: 58 Year
  Sex: Male

DRUGS (7)
  1. TRAMADOL HCL [Concomitant]
     Dosage: TRAMAHEXAL SR
     Dates: start: 20081211
  2. MELOXICAM [Concomitant]
     Dates: start: 20050715
  3. ABATACEPT [Suspect]
     Indication: RHEUMATOID ARTHRITIS
     Dosage: LAST DOSE ON 03FEB2011; THERAPY INTERRUPTED.
     Route: 058
     Dates: start: 20090115
  4. OMEPRAZOLE [Concomitant]
     Dates: start: 20110115
  5. FOLIC ACID [Concomitant]
     Dates: start: 20050202
  6. METHOTREXATE [Suspect]
     Indication: RHEUMATOID ARTHRITIS
     Dosage: 07JUN2010
     Dates: start: 20061130
  7. PANAFCORT [Concomitant]
     Dates: start: 20050715

REACTIONS (3)
  - SPLENOMEGALY [None]
  - HYPERSPLENISM [None]
  - ANAEMIA [None]
